FAERS Safety Report 5632589-9 (Version None)
Quarter: 2008Q1

REPORT INFORMATION
  Report Type: 
  Country: None (occurrence: None)
  Receive Date: 20080220
  Receipt Date: 20080208
  Transmission Date: 20080703
  Serious: Yes (Other)
  Sender: FDA-Public Use
  Company Number: US-PFIZER INC-2007105863

PATIENT
  Sex: Male

DRUGS (1)
  1. CHANTIX [Suspect]
     Indication: EX-SMOKER

REACTIONS (3)
  - CHEST DISCOMFORT [None]
  - HYPOAESTHESIA [None]
  - NAUSEA [None]
